FAERS Safety Report 24655601 (Version 1)
Quarter: 2024Q4

REPORT INFORMATION
  Report Type: Spontaneous
  Country: CZ (occurrence: CZ)
  Receive Date: 20241123
  Receipt Date: 20241123
  Transmission Date: 20250115
  Serious: Yes (Hospitalization, Other)
  Sender: ACCORD
  Company Number: CZ-BAUSCH-BL-2024-014772

PATIENT
  Age: 72 Year
  Sex: Female

DRUGS (2)
  1. ROSUVASTATIN CALCIUM [Suspect]
     Active Substance: ROSUVASTATIN CALCIUM
     Indication: Product used for unknown indication
  2. EZETIMIBE [Concomitant]
     Active Substance: EZETIMIBE
     Indication: Product used for unknown indication
     Dates: start: 2014, end: 2016

REACTIONS (3)
  - Low density lipoprotein abnormal [Recovered/Resolved]
  - Drug tolerance decreased [Unknown]
  - Treatment noncompliance [Unknown]
